FAERS Safety Report 24014356 (Version 1)
Quarter: 2024Q2

REPORT INFORMATION
  Report Type: Spontaneous
  Country: US (occurrence: None)
  Receive Date: 20240626
  Receipt Date: 20240626
  Transmission Date: 20240716
  Serious: Yes (Hospitalization, Other)
  Sender: FDA-Public Use
  Company Number: US-Unichem Pharmaceuticals (USA) Inc-UCM202406-000783

PATIENT
  Age: 36 Year
  Sex: Female

DRUGS (1)
  1. CLONIDINE HYDROCHLORIDE [Suspect]
     Active Substance: CLONIDINE HYDROCHLORIDE
     Indication: Product used for unknown indication
     Dosage: UNKNOWN

REACTIONS (6)
  - Hypotension [Unknown]
  - Ascites [Unknown]
  - Drug withdrawal syndrome [Unknown]
  - Abdominal tenderness [Unknown]
  - Abdominal pain [Unknown]
  - Tachycardia [Unknown]
